FAERS Safety Report 12264929 (Version 1)
Quarter: 2016Q2

REPORT INFORMATION
  Report Type: Spontaneous
  Country: US (occurrence: US)
  Receive Date: 20160413
  Receipt Date: 20160413
  Transmission Date: 20160815
  Serious: No
  Sender: FDA-Public Use
  Company Number: US-JNJFOC-20160312650

PATIENT
  Age: 73 Year
  Sex: Female
  Weight: 67.13 kg

DRUGS (1)
  1. CHILDRENS TYLENOL [Suspect]
     Active Substance: ACETAMINOPHEN
     Indication: ARTHRALGIA
     Dosage: USED WHEN ARTHRITIS COME AND GO
     Route: 048
     Dates: start: 201401

REACTIONS (3)
  - Off label use [Unknown]
  - Wrong drug administered [Unknown]
  - Product use issue [Unknown]

NARRATIVE: CASE EVENT DATE: 201401
